FAERS Safety Report 10160479 (Version 2)
Quarter: 2014Q2

REPORT INFORMATION
  Report Type: Spontaneous
  Country: US (occurrence: US)
  Receive Date: 20140508
  Receipt Date: 20140509
  Transmission Date: 20141212
  Serious: Yes (Other)
  Sender: FDA-Public Use
  Company Number: US-PFIZER INC-2014124563

PATIENT
  Age: 29 Year
  Sex: Male

DRUGS (1)
  1. LYRICA [Suspect]
     Indication: NEUROPATHY PERIPHERAL
     Dosage: UNK

REACTIONS (7)
  - Wound [Unknown]
  - Wound haemorrhage [Unknown]
  - Sensory loss [Unknown]
  - Limb discomfort [Unknown]
  - Gait disturbance [Unknown]
  - Therapeutic response changed [Unknown]
  - Pain [Unknown]
